FAERS Safety Report 19408550 (Version 2)
Quarter: 2021Q3

REPORT INFORMATION
  Report Type: Spontaneous
  Country: DE (occurrence: DE)
  Receive Date: 20210612
  Receipt Date: 20210708
  Transmission Date: 20211014
  Serious: Yes (Hospitalization)
  Sender: FDA-Public Use
  Company Number: DE-TEVA-2021-DE-1920908

PATIENT
  Age: 25 Year
  Sex: Female

DRUGS (3)
  1. TIANEURAX [Suspect]
     Active Substance: TIANEPTINE SODIUM
     Dosage: 37.5 MILLIGRAM DAILY;   1?1?1?0,
     Route: 048
  2. PREGABALIN. [Suspect]
     Active Substance: PREGABALIN
     Dosage: 150 MILLIGRAM DAILY;   1?0?0?0,
     Route: 048
  3. MIRTAZAPIN [Suspect]
     Active Substance: MIRTAZAPINE
     Dosage: 7.5 MILLIGRAM DAILY;   0?0?0?1,
     Route: 048

REACTIONS (4)
  - Illusion [Not Recovered/Not Resolved]
  - Eye movement disorder [Not Recovered/Not Resolved]
  - Facial paresis [Not Recovered/Not Resolved]
  - Vertigo [Not Recovered/Not Resolved]
